FAERS Safety Report 14026627 (Version 6)
Quarter: 2023Q1

REPORT INFORMATION
  Report Type: Spontaneous
  Country: US (occurrence: US)
  Receive Date: 20170929
  Receipt Date: 20230329
  Transmission Date: 20230417
  Serious: Yes (Hospitalization, Other)
  Sender: FDA-Public Use
  Company Number: US-ACORDA-ACO_142380_2017

PATIENT
  Sex: Female
  Weight: 63.5 kg

DRUGS (33)
  1. AMPYRA [Suspect]
     Active Substance: DALFAMPRIDINE
     Indication: Gait disturbance
     Dosage: 10 MILLIGRAM, Q 12 HRS
     Route: 048
     Dates: start: 2016
  2. AMPYRA [Suspect]
     Active Substance: DALFAMPRIDINE
     Indication: Multiple sclerosis
  3. AVONEX [Suspect]
     Active Substance: INTERFERON BETA-1A
     Indication: Multiple sclerosis
     Dosage: 30 MCG WEEKLY
     Route: 030
  4. TECFIDERA [Suspect]
     Active Substance: DIMETHYL FUMARATE
     Indication: Multiple sclerosis
     Dosage: 120 MG, BID
     Route: 065
     Dates: start: 20170929
  5. TECFIDERA [Suspect]
     Active Substance: DIMETHYL FUMARATE
     Dosage: 120 MG, QD
     Route: 065
     Dates: start: 20170922, end: 20170922
  6. TECFIDERA [Suspect]
     Active Substance: DIMETHYL FUMARATE
     Dosage: 240 MG, BID
     Route: 048
     Dates: start: 201709, end: 201709
  7. COPAXONE [Suspect]
     Active Substance: GLATIRAMER ACETATE
     Indication: Multiple sclerosis
     Dosage: 40 MG/ML, 3X/WK
     Route: 058
     Dates: start: 201604, end: 201709
  8. VERZENIO [Suspect]
     Active Substance: ABEMACICLIB
     Indication: Breast cancer female
     Dosage: UNKNOWN
     Route: 065
  9. BUPROPION [Concomitant]
     Active Substance: BUPROPION
     Indication: Depression
     Dosage: 150 MG, BID
     Route: 048
  10. LAMOTRIGINE [Concomitant]
     Active Substance: LAMOTRIGINE
     Indication: Neuralgia
     Dosage: 200 MG, BID
     Route: 048
  11. DEXTROAMPHETAMINE [Concomitant]
     Active Substance: DEXTROAMPHETAMINE
     Indication: Cognitive disorder
     Dosage: UNK
     Route: 065
  12. DEXTROAMPHETAMINE [Concomitant]
     Active Substance: DEXTROAMPHETAMINE
     Indication: Speech disorder
  13. ATORVASTATIN [Concomitant]
     Active Substance: ATORVASTATIN
     Indication: Blood cholesterol increased
     Dosage: 10 MG, QD
     Route: 048
  14. MODAFINIL [Concomitant]
     Active Substance: MODAFINIL
     Indication: Fatigue
     Dosage: 200 MG, 200 MG IN AM 1/2 AT NOON
     Route: 048
  15. TOLTERODINE TARTRATE [Concomitant]
     Active Substance: TOLTERODINE TARTRATE
     Indication: Stress urinary incontinence
     Dosage: UNK
     Route: 065
  16. CYCLOBENZAPRINE [Concomitant]
     Active Substance: CYCLOBENZAPRINE
     Indication: Muscle spasms
     Dosage: 10 MG, THREE TIMES DAILY AS NEEDED
     Route: 048
  17. ALPRAZOLAM [Concomitant]
     Active Substance: ALPRAZOLAM
     Indication: Anxiety
     Dosage: 0.5 MG, QD AT BEDTIME
     Route: 048
  18. TRAZODONE HCL [Concomitant]
     Active Substance: TRAZODONE HYDROCHLORIDE
     Indication: Insomnia
     Dosage: 100 MG, HS
     Route: 048
  19. OMEPRAZOLE [Concomitant]
     Active Substance: OMEPRAZOLE
     Indication: Nausea
     Dosage: UNK
     Route: 065
  20. OMEPRAZOLE [Concomitant]
     Active Substance: OMEPRAZOLE
     Indication: Vomiting
  21. OMEPRAZOLE [Concomitant]
     Active Substance: OMEPRAZOLE
     Indication: Flatulence
  22. OMEPRAZOLE [Concomitant]
     Active Substance: OMEPRAZOLE
     Indication: Abdominal distension
  23. OMEPRAZOLE [Concomitant]
     Active Substance: OMEPRAZOLE
     Indication: Abdominal pain
  24. DETROL LA [Concomitant]
     Active Substance: TOLTERODINE TARTRATE
     Indication: Muscle spasms
     Dosage: 4 MG, QD
     Route: 048
  25. CLEARLAX [Concomitant]
     Active Substance: POLYETHYLENE GLYCOL 3350
     Indication: Product used for unknown indication
     Dosage: UNK
     Route: 048
  26. FLONASE [Concomitant]
     Active Substance: FLUTICASONE PROPIONATE
     Indication: Product used for unknown indication
     Dosage: 1 SPRAY IN EACH NOSTRIL NASALLY ONCE DAILY
     Route: 045
  27. VITAMINS [Concomitant]
     Active Substance: VITAMINS
     Indication: Product used for unknown indication
     Dosage: UNK
     Route: 048
  28. LACTOBACILLUS ACIDOPHILUS [Concomitant]
     Active Substance: LACTOBACILLUS ACIDOPHILUS
     Indication: Product used for unknown indication
     Dosage: UNK
     Route: 048
  29. VITAMIN B12 [Concomitant]
     Active Substance: CYANOCOBALAMIN
     Indication: Product used for unknown indication
     Dosage: 100 MCG
     Route: 048
  30. VITAMIN B COMPLEX [Concomitant]
     Active Substance: CYANOCOBALAMIN\DEXPANTHENOL\NIACINAMIDE\PYRIDOXINE HYDROCHLORIDE\RIBOFLAVIN 5^-PHOSPHATE SODIUM\THIA
     Indication: Product used for unknown indication
     Dosage: 8NG/6MCG/725 MG
     Route: 048
  31. VITAMIN C [Concomitant]
     Active Substance: ASCORBIC ACID
     Indication: Product used for unknown indication
     Dosage: 1000 MG, QD
     Route: 048
  32. VITAMIN D [Concomitant]
     Active Substance: VITAMIN D NOS
     Indication: Product used for unknown indication
     Dosage: 1000 IU, QD
     Route: 048
  33. ZYRTEC [Concomitant]
     Active Substance: CETIRIZINE HYDROCHLORIDE
     Indication: Product used for unknown indication
     Dosage: 10 MG, QD
     Route: 048

REACTIONS (27)
  - Breast cancer female [Unknown]
  - Caesarean section [Unknown]
  - Multiple sclerosis relapse [Not Recovered/Not Resolved]
  - Stress [Unknown]
  - Fine motor skill dysfunction [Unknown]
  - Condition aggravated [Unknown]
  - Hemiparesis [Unknown]
  - Memory impairment [Unknown]
  - Aphasia [Unknown]
  - Fall [Unknown]
  - Muscular weakness [Unknown]
  - Limb injury [Unknown]
  - Head injury [Unknown]
  - Skin abrasion [Unknown]
  - Flushing [Recovering/Resolving]
  - Urticaria [Recovering/Resolving]
  - Mobility decreased [Unknown]
  - Oral pain [Unknown]
  - Multiple sclerosis [Not Recovered/Not Resolved]
  - Multiple sclerosis [Unknown]
  - Multiple sclerosis relapse [Recovering/Resolving]
  - Multiple sclerosis relapse [Not Recovered/Not Resolved]
  - Multiple sclerosis relapse [Unknown]
  - Dizziness [Not Recovered/Not Resolved]
  - Balance disorder [Unknown]
  - Multiple sclerosis [Unknown]
  - Multiple sclerosis relapse [Unknown]

NARRATIVE: CASE EVENT DATE: 20160101
